FAERS Safety Report 8067701-8 (Version None)
Quarter: 2012Q1

REPORT INFORMATION
  Report Type: 
  Country: None (occurrence: None)
  Receive Date: 20120124
  Receipt Date: 20120117
  Transmission Date: 20120608
  Serious: Yes (Death)
  Sender: FDA-Public Use
  Company Number: US-AMGEN-USASP2011064868

PATIENT
  Age: 96 Year
  Sex: Male
  Weight: 52.154 kg

DRUGS (9)
  1. ASPIRIN [Concomitant]
  2. PROCRIT [Suspect]
     Indication: ANAEMIA
     Dosage: 4000 IU, QMO
     Route: 058
     Dates: start: 20090810
  3. ADVAIR DISKUS 100/50 [Concomitant]
  4. TAMSULOSIN HCL [Concomitant]
  5. ASCORBIC ACID [Concomitant]
  6. TRICOR [Concomitant]
  7. VITAMIN D [Concomitant]
  8. HYDROCHLOROTHIAZIDE [Concomitant]
  9. IRON [Concomitant]

REACTIONS (1)
  - DEATH [None]
